FAERS Safety Report 9175072 (Version 2)
Quarter: 2013Q2

REPORT INFORMATION
  Report Type: Spontaneous
  Country: JP (occurrence: JP)
  Receive Date: 20130320
  Receipt Date: 20130607
  Transmission Date: 20140414
  Serious: Yes (Hospitalization)
  Sender: FDA-Public Use
  Company Number: JP-JNJFOC-20130312391

PATIENT
  Age: 72 Year
  Sex: Male

DRUGS (6)
  1. FINIBAX [Suspect]
     Indication: ABSCESS
     Route: 041
     Dates: start: 20130312, end: 20130315
  2. FINIBAX [Suspect]
     Indication: STAPHYLOCOCCAL INFECTION
     Route: 041
     Dates: start: 20130312, end: 20130315
  3. VANCOMYCIN [Suspect]
     Indication: ABSCESS
     Route: 041
     Dates: start: 20130312
  4. VANCOMYCIN [Suspect]
     Indication: STAPHYLOCOCCAL INFECTION
     Route: 041
     Dates: start: 20130312
  5. FOSMICIN-S [Suspect]
     Indication: ABSCESS
     Route: 041
     Dates: start: 20130312, end: 20130315
  6. FOSMICIN-S [Suspect]
     Indication: STAPHYLOCOCCAL INFECTION
     Route: 041
     Dates: start: 20130312, end: 20130315

REACTIONS (1)
  - Liver disorder [Not Recovered/Not Resolved]
